FAERS Safety Report 5228071-3 (Version None)
Quarter: 2007Q1

REPORT INFORMATION
  Report Type: 
  Country: None (occurrence: None)
  Receive Date: 20061201
  Receipt Date: 20061011
  Transmission Date: 20070707
  Serious: No
  Sender: FDA-Public Use
  Company Number: US200610002148

PATIENT
  Age: 29 Year
  Sex: Female

DRUGS (3)
  1. CYMBALTA [Suspect]
     Indication: DRUG DEPENDENCE
     Dosage: SEE IMAGE
     Dates: end: 20060101
  2. CYMBALTA [Suspect]
     Indication: DRUG DEPENDENCE
     Dosage: SEE IMAGE
     Dates: start: 20060920
  3. WELLBUTRIN (IBUPROPIN HYDROCHLORIDE) [Concomitant]

REACTIONS (2)
  - PRURITUS [None]
  - URTICARIA [None]
